FAERS Safety Report 10173052 (Version 2)
Quarter: 2014Q2

REPORT INFORMATION
  Report Type: Spontaneous
  Country: JP (occurrence: JP)
  Receive Date: 20140515
  Receipt Date: 20140518
  Transmission Date: 20141212
  Serious: Yes (Other)
  Sender: FDA-Public Use
  Company Number: JP-ROCHE-1401059

PATIENT
  Age: 55 Year
  Sex: Male
  Weight: 44 kg

DRUGS (5)
  1. XELODA [Suspect]
     Indication: COLON CANCER
     Dosage: STRENGTH : 300
     Route: 048
     Dates: start: 201007, end: 2011
  2. 5-FU [Concomitant]
     Indication: SMALL INTESTINE CARCINOMA
     Dosage: DOSAGE IS UNCERTAIN.
     Route: 040
     Dates: start: 200911
  3. 5-FU [Concomitant]
     Indication: SMALL INTESTINE CARCINOMA
     Dosage: DOSAGE IS UNCERTAIN.
     Route: 041
     Dates: start: 200911
  4. LEVOFOLINATE [Concomitant]
     Indication: SMALL INTESTINE CARCINOMA
     Dosage: DOSAGE IS UNCERTAIN.
     Route: 041
     Dates: start: 200911
  5. OXALIPLATIN [Concomitant]
     Route: 065
     Dates: start: 201007

REACTIONS (2)
  - Anaemia [Unknown]
  - Disease progression [Unknown]
